FAERS Safety Report 10442381 (Version 1)
Quarter: 2014Q3

REPORT INFORMATION
  Report Type: Spontaneous
  Country: IT (occurrence: IT)
  Receive Date: 20140909
  Receipt Date: 20140909
  Transmission Date: 20150326
  Serious: Yes (Other)
  Sender: FDA-Public Use
  Company Number: IT-TEVA-506221ISR

PATIENT
  Age: 68 Year
  Sex: Female

DRUGS (3)
  1. DEPAKIN - SANOFI-AVENTIS S.P.A. [Suspect]
     Active Substance: VALPROATE SODIUM
  2. QUETIAPINE [Suspect]
     Active Substance: QUETIAPINE
  3. RIVOTRIL [Suspect]
     Active Substance: CLONAZEPAM

REACTIONS (3)
  - Bradyphrenia [Recovering/Resolving]
  - Intentional overdose [Recovering/Resolving]
  - Bradykinesia [Recovering/Resolving]

NARRATIVE: CASE EVENT DATE: 20140808
